FAERS Safety Report 24050140 (Version 1)
Quarter: 2024Q3

REPORT INFORMATION
  Report Type: Spontaneous
  Country: JP (occurrence: JP)
  Receive Date: 20240704
  Receipt Date: 20240704
  Transmission Date: 20241017
  Serious: Yes (Other)
  Sender: Steriscience PTE
  Company Number: JP-STERISCIENCE B.V.-2024-ST-000955

PATIENT
  Age: 37 Year
  Sex: Female

DRUGS (1)
  1. AMPICILLIN [Suspect]
     Active Substance: AMPICILLIN
     Indication: Syphilis
     Dosage: 2 GRAM, Q4H
     Route: 042

REACTIONS (2)
  - Jarisch-Herxheimer reaction [Unknown]
  - Maternal exposure during pregnancy [Unknown]
